FAERS Safety Report 6400961-5 (Version None)
Quarter: 2009Q4

REPORT INFORMATION
  Report Type: 
  Country: None (occurrence: None)
  Receive Date: 20091015
  Receipt Date: 20070319
  Transmission Date: 20100525
  Serious: Yes (Disabling)
  Sender: FDA-Public Use
  Company Number: US-ASTRAZENECA-2006UW08360

PATIENT
  Sex: Female
  Weight: 123.8 kg

DRUGS (7)
  1. SEROQUEL [Suspect]
     Route: 048
  2. TEGRETOL [Concomitant]
     Dosage: STRENGTH - 200 MG, 300 MG, DOSE - 500 - 1200 MG DAILY
     Route: 048
     Dates: start: 19920428
  3. PEPCID [Concomitant]
     Dates: start: 19931119
  4. ZOLOFT [Concomitant]
     Dates: start: 19931119
  5. LITHIUM [Concomitant]
     Dates: start: 19920101
  6. GLIPIZIDE [Concomitant]
     Dates: start: 20071228
  7. LEVOTHYROXINE SODIUM [Concomitant]
     Dates: start: 19920428

REACTIONS (1)
  - ILL-DEFINED DISORDER [None]
